FAERS Safety Report 22011481 (Version 2)
Quarter: 2023Q2

REPORT INFORMATION
  Report Type: Report from Study
  Country: US (occurrence: US)
  Receive Date: 20230220
  Receipt Date: 20230622
  Transmission Date: 20230721
  Serious: Yes (Disabling)
  Sender: FDA-Public Use
  Company Number: US-AURINIA PHARMACEUTICALS INC.-AUR-002540

PATIENT
  Age: 25 Year
  Sex: Female

DRUGS (1)
  1. LUPKYNIS [Suspect]
     Active Substance: VOCLOSPORIN
     Indication: Lupus nephritis
     Dosage: 15.8 MILLIGRAM, BID
     Route: 048
     Dates: start: 20211216, end: 20220901

REACTIONS (1)
  - Insomnia [Recovering/Resolving]

NARRATIVE: CASE EVENT DATE: 20220901
